FAERS Safety Report 20189992 (Version 1)
Quarter: 2021Q4

REPORT INFORMATION
  Report Type: Spontaneous
  Country: IN (occurrence: IN)
  Receive Date: 20211215
  Receipt Date: 20211215
  Transmission Date: 20220303
  Serious: Yes (Death)
  Sender: FDA-Public Use
  Company Number: IN-PFIZER INC-2020032814

PATIENT
  Age: 68 Year
  Sex: Female

DRUGS (2)
  1. SUTENT [Suspect]
     Active Substance: SUNITINIB MALATE
     Indication: Metastatic renal cell carcinoma
     Dosage: 50 MG/ONCE A DAY, CYCLIC, 2 WEEKS ON AND 1WEEK OFF
     Route: 048
     Dates: start: 20191224, end: 202012
  2. SUTENT [Suspect]
     Active Substance: SUNITINIB MALATE
     Dosage: 37.5 MG, CYCLIC (ONCE A DAY FOR 2 WEEKS ON AND 1WEEK OFF)
     Dates: start: 20200806, end: 202012

REACTIONS (2)
  - Cardiac arrest [Fatal]
  - Palmar-plantar erythrodysaesthesia syndrome [Unknown]
